FAERS Safety Report 9496350 (Version 1)
Quarter: 2013Q3

REPORT INFORMATION
  Report Type: Spontaneous
  Country: JP (occurrence: None)
  Receive Date: 20130829
  Receipt Date: 20130829
  Transmission Date: 20140515
  Serious: Yes (Hospitalization)
  Sender: FDA-Public Use
  Company Number: TCI2013A04556

PATIENT
  Age: 74 Year
  Sex: Male

DRUGS (3)
  1. TAKEPRON OD TABLETS 15 (LANSOPRAZOLE) [Suspect]
     Indication: GASTROOESOPHAGEAL REFLUX DISEASE
     Route: 048
     Dates: start: 20130702, end: 20130811
  2. SPIRIVA RESPIMAT (TIOTROPIUM BROMIDE) [Concomitant]
  3. MAGMITT (MAGNESIUM OXIDE) [Concomitant]

REACTIONS (1)
  - Inappropriate antidiuretic hormone secretion [None]
